FAERS Safety Report 18425342 (Version 1)
Quarter: 2020Q4

REPORT INFORMATION
  Report Type: Spontaneous
  Country: US (occurrence: US)
  Receive Date: 20201024
  Receipt Date: 20201024
  Transmission Date: 20210114
  Serious: No
  Sender: FDA-Public Use
  Company Number: None

PATIENT
  Sex: Female

DRUGS (1)
  1. LIDOCAINE PATCH 5% [Suspect]
     Active Substance: LIDOCAINE
     Route: 062

REACTIONS (3)
  - Product adhesion issue [None]
  - Application site pain [None]
  - Drug ineffective [None]
